FAERS Safety Report 20174117 (Version 2)
Quarter: 2021Q4

REPORT INFORMATION
  Report Type: Spontaneous
  Country: US (occurrence: US)
  Receive Date: 20211213
  Receipt Date: 20211224
  Transmission Date: 20220303
  Serious: No
  Sender: FDA-Public Use
  Company Number: US-BRISTOL-MYERS SQUIBB COMPANY-BMS-2021-132270

PATIENT
  Age: 52 Year
  Sex: Female
  Weight: 62.132 kg

DRUGS (6)
  1. ORENCIA [Suspect]
     Active Substance: ABATACEPT
     Indication: Systemic lupus erythematosus
     Dosage: 125 MILLIGRAM, QWK
     Route: 058
     Dates: start: 20180516
  2. ORENCIA [Suspect]
     Active Substance: ABATACEPT
     Indication: Systemic lupus erythematosus
     Dosage: 125 MILLIGRAM, QWK
     Route: 058
     Dates: start: 20180516
  3. ORENCIA [Suspect]
     Active Substance: ABATACEPT
     Indication: Migraine
  4. ORENCIA [Suspect]
     Active Substance: ABATACEPT
     Indication: Migraine
  5. ORENCIA [Suspect]
     Active Substance: ABATACEPT
     Indication: Rheumatoid arthritis
  6. ORENCIA [Suspect]
     Active Substance: ABATACEPT
     Indication: Rheumatoid arthritis

REACTIONS (2)
  - Device defective [Unknown]
  - Device leakage [Unknown]
